FAERS Safety Report 5471331-1 (Version None)
Quarter: 2007Q3

REPORT INFORMATION
  Report Type: 
  Country: None (occurrence: None)
  Receive Date: 20070928
  Receipt Date: 20060811
  Transmission Date: 20080115
  Serious: No
  Sender: FDA-Public Use
  Company Number: US-BRISTOL-MYERS SQUIBB COMPANY-13472642

PATIENT
  Age: 57 Year
  Sex: Female
  Weight: 90 kg

DRUGS (5)
  1. DEFINITY [Suspect]
     Indication: STRESS ECHOCARDIOGRAM
     Route: 042
  2. CARDIZEM [Concomitant]
  3. METFORMIN [Concomitant]
  4. HYDROCHLOROTHIAZIDE [Concomitant]
  5. ASCORBIC ACID [Concomitant]

REACTIONS (2)
  - MUSCLE SPASMS [None]
  - MUSCULOSKELETAL PAIN [None]
